FAERS Safety Report 21748965 (Version 1)
Quarter: 2022Q4

REPORT INFORMATION
  Report Type: Report from Study
  Country: CA (occurrence: CA)
  Receive Date: 20221219
  Receipt Date: 20221219
  Transmission Date: 20230113
  Serious: Yes (Other)
  Sender: FDA-Public Use
  Company Number: CA-002147023-NVSC2022CA291809

PATIENT
  Age: 69 Year
  Sex: Male
  Weight: 103 kg

DRUGS (7)
  1. GLICLAZIDE [Suspect]
     Active Substance: GLICLAZIDE
     Indication: Asthma
     Dosage: 60 MG, QD
     Route: 065
  2. ROSUVASTATIN [Suspect]
     Active Substance: ROSUVASTATIN
     Indication: Asthma
     Dosage: 10 MG, QD
     Route: 048
  3. BISOPROLOL [Suspect]
     Active Substance: BISOPROLOL
     Indication: Asthma
     Dosage: 7.5 MG, QD
     Route: 048
  4. FUROSEMIDE [Suspect]
     Active Substance: FUROSEMIDE
     Indication: Asthma
     Dosage: 40 MG, QD
     Route: 048
  5. ZENHALE [Concomitant]
     Active Substance: FORMOTEROL FUMARATE\MOMETASONE FUROATE
     Indication: Product used for unknown indication
     Dosage: 2 DOSAGE FORM, BID
  6. VENTOLIN [Concomitant]
     Active Substance: ALBUTEROL SULFATE
     Indication: Product used for unknown indication
     Dosage: 1 DOSAGE FORM, Q6H (PUFFERS ON TOP OF THE ONE PUFF Q.6H., HE USES AN EXTRA PUFF TWO TO THREE TIMES A
     Route: 065
  7. PREDNISONE [Concomitant]
     Active Substance: PREDNISONE
     Indication: Product used for unknown indication
     Dosage: 50 MG, PRN
     Route: 065

REACTIONS (6)
  - Cardiac failure [Unknown]
  - Hypervolaemia [Unknown]
  - Oedema peripheral [Unknown]
  - Conjunctivitis allergic [Unknown]
  - Pollakiuria [Unknown]
  - Product use in unapproved indication [Unknown]
